FAERS Safety Report 5598679-4 (Version None)
Quarter: 2007Q4

REPORT INFORMATION
  Report Type: 
  Country: None (occurrence: None)
  Receive Date: 20071226
  Receipt Date: 20071024
  Transmission Date: 20080405
  Serious: No
  Sender: FDA-Public Use
  Company Number: 2007PV033628

PATIENT
  Age: 47 Year
  Sex: Female

DRUGS (3)
  1. SYMLIN [Suspect]
     Indication: TYPE 1 DIABETES MELLITUS
     Dosage: 60 MCG,TID,60 MCG,BID,48 MCGTID,48 MCGBID,30 MCG,TID, 30 MCG, BID, 15 MCG, TID, 15 MCG, BID, SC
     Route: 058
     Dates: start: 20060101, end: 20060101
  2. SYMLIN [Suspect]
     Indication: TYPE 1 DIABETES MELLITUS
     Dosage: 60 MCG,TID,60 MCG,BID,48 MCGTID,48 MCGBID,30 MCG,TID, 30 MCG, BID, 15 MCG, TID, 15 MCG, BID, SC
     Route: 058
     Dates: start: 20060101
  3. NOVOLOG [Concomitant]

REACTIONS (2)
  - NAUSEA [None]
  - POLLAKIURIA [None]
